FAERS Safety Report 18605894 (Version 1)
Quarter: 2020Q4

REPORT INFORMATION
  Report Type: Spontaneous
  Country: US (occurrence: US)
  Receive Date: 20201211
  Receipt Date: 20201211
  Transmission Date: 20210114
  Serious: No
  Sender: FDA-Public Use
  Company Number: US-ASTRAZENECA-2020SF52342

PATIENT
  Sex: Male
  Weight: 124.3 kg

DRUGS (1)
  1. BUDESONIDE FORMOTEROL [Suspect]
     Active Substance: BUDESONIDE
     Indication: COUGH
     Dosage: 160/4.5MCG 2 PUFFS TWICE A DAY
     Route: 055
     Dates: start: 20201110

REACTIONS (2)
  - Oxygen saturation decreased [Unknown]
  - Drug ineffective for unapproved indication [Unknown]
